FAERS Safety Report 10526121 (Version 2)
Quarter: 2014Q4

REPORT INFORMATION
  Report Type: Report from Study
  Country: DE (occurrence: DE)
  Receive Date: 20141017
  Receipt Date: 20141024
  Transmission Date: 20150528
  Serious: Yes (Hospitalization)
  Sender: FDA-Public Use
  Company Number: DE-BAXTER-2014BAX061104

PATIENT
  Age: 45 Year
  Weight: 110 kg

DRUGS (14)
  1. KALETRA [Concomitant]
     Active Substance: LOPINAVIR\RITONAVIR
     Indication: ANTIRETROVIRAL THERAPY
     Dosage: 100MG/25MG TAB; 2 TABS-AM, 2 TABS-NIGHT
     Route: 048
     Dates: start: 20010901
  2. ADVATE [Suspect]
     Active Substance: ANTIHEMOPHILIC FACTOR, HUMAN RECOMBINANT
     Indication: PROPHYLAXIS
     Route: 065
     Dates: start: 20040601, end: 20140404
  3. TEGRETAL [Concomitant]
     Active Substance: CARBAMAZEPINE
     Indication: CONVULSION PROPHYLAXIS
     Dosage: 1 IN AM; 2 IN EVENING
     Route: 048
     Dates: start: 20010901
  4. ALTINSULIN [Concomitant]
     Indication: DIABETES PROPHYLAXIS
     Route: 058
     Dates: start: 20130401
  5. KEPPRA [Concomitant]
     Active Substance: LEVETIRACETAM
     Dosage: 1 AT NOON
     Route: 048
     Dates: start: 20021201
  6. RISPERDAL [Concomitant]
     Active Substance: RISPERIDONE
     Indication: AGGRESSION
     Dosage: IN THE EVENING
     Route: 048
     Dates: start: 20040601
  7. ALTINSULIN [Concomitant]
     Indication: TYPE 2 DIABETES MELLITUS
  8. IMODIUM [Concomitant]
     Active Substance: LOPERAMIDE HYDROCHLORIDE
     Indication: DIARRHOEA
     Dosage: AT NOON
     Route: 048
     Dates: start: 20060901
  9. KEPPRA [Concomitant]
     Active Substance: LEVETIRACETAM
     Indication: CONVULSION PROPHYLAXIS
     Dosage: 1 IN AM; 1 IN EVENING
     Route: 048
     Dates: start: 20021201
  10. LEPTILAN [Concomitant]
     Indication: CONVULSION PROPHYLAXIS
     Dosage: 1 IN AM, 1 AT NIGHT
     Route: 048
     Dates: start: 20021201
  11. TROSPIUMCHLORID [Concomitant]
     Indication: INCONTINENCE
     Route: 048
     Dates: start: 20140128
  12. ADVATE [Suspect]
     Active Substance: ANTIHEMOPHILIC FACTOR, HUMAN RECOMBINANT
     Indication: FACTOR VIII DEFICIENCY
  13. COMBIVIR [Concomitant]
     Active Substance: LAMIVUDINE\ZIDOVUDINE
     Indication: ANTIRETROVIRAL THERAPY
     Dosage: 150MG/300MG TAB;1 TAB-AM, 1 TAB-NIGHT
     Route: 048
     Dates: start: 20010901
  14. LANTUS [Concomitant]
     Active Substance: INSULIN GLARGINE
     Indication: DIABETES PROPHYLAXIS
     Route: 058
     Dates: start: 20130401

REACTIONS (1)
  - Urinary tract infection [Recovered/Resolved]

NARRATIVE: CASE EVENT DATE: 20140406
